FAERS Safety Report 9303688 (Version 1)
Quarter: 2013Q2

REPORT INFORMATION
  Report Type: Spontaneous
  Country: US (occurrence: None)
  Receive Date: 20130521
  Receipt Date: 20130521
  Transmission Date: 20140414
  Serious: Yes (Hospitalization)
  Sender: FDA-Public Use
  Company Number: None

PATIENT
  Age: 71 None
  Sex: Male
  Weight: 111.4 kg

DRUGS (2)
  1. AMLODIPINE [Suspect]
     Route: 048
     Dates: start: 20121101
  2. FUROSEMIDE [Suspect]
     Route: 048
     Dates: start: 20121130

REACTIONS (4)
  - Orthostatic hypotension [None]
  - Fall [None]
  - Injury [None]
  - Memory impairment [None]
